FAERS Safety Report 4567993-3 (Version None)
Quarter: 2005Q1

REPORT INFORMATION
  Report Type: 
  Country: None (occurrence: None)
  Receive Date: 20050131
  Receipt Date: 20050118
  Transmission Date: 20050727
  Serious: Yes (Hospitalization)
  Sender: FDA-Public Use
  Company Number: 2005-BP-00787BP

PATIENT
  Sex: Female

DRUGS (1)
  1. MICARDIS HCT [Suspect]
     Dosage: SEE TEXT (SEE TEXT, 80 MG/12.5MG (1 TABLET QD), PO
     Route: 048
     Dates: start: 20041228

REACTIONS (7)
  - CORONARY ARTERY OCCLUSION [None]
  - DIALYSIS [None]
  - KIDNEY INFECTION [None]
  - POSTOPERATIVE INFECTION [None]
  - RASH [None]
  - RENAL FAILURE [None]
  - STAPHYLOCOCCAL INFECTION [None]
